FAERS Safety Report 20955408 (Version 1)
Quarter: 2022Q2

REPORT INFORMATION
  Report Type: Spontaneous
  Country: US (occurrence: US)
  Receive Date: 20220614
  Receipt Date: 20220614
  Transmission Date: 20220720
  Serious: Yes (Hospitalization, Other)
  Sender: FDA-Public Use
  Company Number: US-MYLANLABS-2022M1044852

PATIENT
  Age: 6 Decade
  Sex: Female

DRUGS (6)
  1. TRIAMCINOLONE [Suspect]
     Active Substance: TRIAMCINOLONE
     Indication: Periarthritis
     Dosage: 2 MILLILITER
  2. EPINEPHRINE [Suspect]
     Active Substance: EPINEPHRINE
     Indication: Periarthritis
     Dosage: UNK, INTRA-ARTICULAR PAIN PUMP; AT A FLOW RATE OF 2 ML/HR.
     Route: 014
  3. EPINEPHRINE [Suspect]
     Active Substance: EPINEPHRINE
     Indication: Local anaesthesia
  4. BUPIVACAINE [Suspect]
     Active Substance: BUPIVACAINE
     Indication: Periarthritis
     Dosage: 8 MILLILITER
  5. BUPIVACAINE [Suspect]
     Active Substance: BUPIVACAINE
     Indication: Periarthritis
     Dosage: UNK, INTRA-ARTICULAR PAIN PUMP; AT A FLOW RATE OF 2 ML/HR.
     Route: 014
  6. BUPIVACAINE [Suspect]
     Active Substance: BUPIVACAINE
     Indication: Local anaesthesia

REACTIONS (3)
  - Chondrolysis [Recovering/Resolving]
  - Drug ineffective [Unknown]
  - Off label use [Unknown]
